FAERS Safety Report 24658791 (Version 1)
Quarter: 2024Q4

REPORT INFORMATION
  Report Type: Spontaneous
  Country: US (occurrence: None)
  Receive Date: 20241122
  Receipt Date: 20241122
  Transmission Date: 20250115
  Serious: Yes (unspecified)
  Sender: Public
  Company Number: None

PATIENT
  Age: 37 Year
  Sex: Male
  Weight: 87.75 kg

DRUGS (2)
  1. BRIXADI [Suspect]
     Active Substance: BUPRENORPHINE
     Indication: Drug use disorder
     Dosage: 0.64 ML WEEKLY SUABCUTANEOUS
     Route: 058
     Dates: start: 20241025
  2. BRIXADI [Suspect]
     Active Substance: BUPRENORPHINE

REACTIONS (4)
  - Injection site pain [None]
  - Injection site swelling [None]
  - Injection site warmth [None]
  - Injection site induration [None]

NARRATIVE: CASE EVENT DATE: 20241108
